FAERS Safety Report 6228584-1 (Version None)
Quarter: 2009Q2

REPORT INFORMATION
  Report Type: 
  Country: None (occurrence: None)
  Receive Date: 20090612
  Receipt Date: 20090406
  Transmission Date: 20091009
  Serious: Yes (Other)
  Sender: FDA-Public Use
  Company Number: US-SANOFI-SYNTHELABO-A03200900815

PATIENT
  Sex: Female
  Weight: 90.7 kg

DRUGS (6)
  1. HYZAAR [Concomitant]
     Indication: HYPERTENSION
     Dosage: 100/25 DAILY
     Route: 065
     Dates: start: 19970101
  2. PLAVIX [Suspect]
     Indication: PROPHYLAXIS
     Route: 048
     Dates: start: 20081015
  3. PLAVIX [Suspect]
     Indication: CEREBROVASCULAR ACCIDENT
     Route: 048
     Dates: start: 20081015
  4. VITAMIN [Concomitant]
     Indication: DRUG USE FOR UNKNOWN INDICATION
     Route: 048
  5. ASPIRIN [Concomitant]
     Indication: ARTHRALGIA
     Dosage: TWO TO SIX TABLETS DAILY
     Route: 048
     Dates: start: 20000101, end: 20090201
  6. POTASSIUM CHLORIDE [Concomitant]
     Indication: JOINT ARTHROPLASTY
     Dosage: 2 DF
     Route: 048
     Dates: start: 20000101

REACTIONS (2)
  - ARTERIOSCLEROSIS [None]
  - BLOOD CHOLESTEROL INCREASED [None]
